FAERS Safety Report 8395966-1 (Version None)
Quarter: 2012Q2

REPORT INFORMATION
  Report Type: 
  Country: None (occurrence: None)
  Receive Date: 20120530
  Receipt Date: 20120524
  Transmission Date: 20120825
  Serious: Yes (Death)
  Sender: FDA-Public Use
  Company Number: US-PFIZER INC-2012078109

PATIENT
  Sex: Female

DRUGS (3)
  1. VFEND [Suspect]
     Indication: ASPERGILLOSIS
     Dosage: 200 MG, 2X/DAY
     Dates: start: 20111101
  2. VFEND [Suspect]
     Indication: BRONCHOPULMONARY ASPERGILLOSIS
  3. DILTIAZEM [Concomitant]
     Dosage: UNK

REACTIONS (1)
  - DEATH [None]
